FAERS Safety Report 9602865 (Version 1)
Quarter: 2013Q4

REPORT INFORMATION
  Report Type: Spontaneous
  Country: GB (occurrence: GB)
  Receive Date: 20131007
  Receipt Date: 20131007
  Transmission Date: 20140711
  Serious: Yes (Disabling)
  Sender: FDA-Public Use
  Company Number: ALCN2013GB005009

PATIENT
  Age: 60 Year
  Sex: Male

DRUGS (1)
  1. DEXAMETHASONE [Suspect]
     Dosage: UNK
     Dates: start: 20120924, end: 20121001

REACTIONS (2)
  - Oral candidiasis [Recovering/Resolving]
  - Dysphagia [Unknown]
